FAERS Safety Report 4824018-X (Version None)
Quarter: 2005Q4

REPORT INFORMATION
  Report Type: 
  Country: None (occurrence: None)
  Receive Date: 20051108
  Receipt Date: 20051019
  Transmission Date: 20060501
  Serious: Yes (Hospitalization, Other)
  Sender: FDA-Public Use
  Company Number: WAES 0507PER00011

PATIENT
  Age: 74 Year
  Sex: Female

DRUGS (4)
  1. COZAAR [Suspect]
     Indication: CARDIAC FAILURE
     Dosage: PO
     Route: 048
     Dates: start: 20050215
  2. ASPIRIN [Concomitant]
  3. DIGOXIN [Concomitant]
  4. SPIRONOLACTONE [Concomitant]

REACTIONS (6)
  - ATRIAL FIBRILLATION [None]
  - CARDIAC FAILURE [None]
  - PLEURAL EFFUSION [None]
  - PLEURISY [None]
  - TUBERCULOSIS [None]
  - UPPER RESPIRATORY TRACT INFECTION [None]
